FAERS Safety Report 16173388 (Version 5)
Quarter: 2020Q1

REPORT INFORMATION
  Report Type: Spontaneous
  Country: FR (occurrence: FR)
  Receive Date: 20190409
  Receipt Date: 20200110
  Transmission Date: 20200409
  Serious: Yes (Hospitalization, Other)
  Sender: FDA-Public Use
  Company Number: FR-AUROBINDO-AUR-APL-2019-019035

PATIENT
  Age: 33 Year
  Sex: Male
  Weight: 94.3 kg

DRUGS (5)
  1. ADOPORT [Suspect]
     Active Substance: TACROLIMUS
     Indication: RENAL TRANSPLANT
     Dosage: 9.5 MILLIGRAM
     Route: 048
     Dates: start: 20190203
  2. PARACETAMOL [Suspect]
     Active Substance: ACETAMINOPHEN
     Indication: PRODUCT USED FOR UNKNOWN INDICATION
     Dosage: UNK
     Route: 065
     Dates: end: 20190221
  3. ADOPORT [Suspect]
     Active Substance: TACROLIMUS
     Dosage: 11 MILLIGRAM
     Route: 048
     Dates: start: 20190203
  4. ADOPORT [Suspect]
     Active Substance: TACROLIMUS
     Dosage: 9.5 MILLIGRAM
     Route: 048
     Dates: start: 20191014
  5. BACTRIM [Interacting]
     Active Substance: SULFAMETHOXAZOLE\TRIMETHOPRIM
     Indication: HEPATOCELLULAR INJURY
     Dosage: 400 MILLIGRAM, ONCE A DAY
     Route: 065
     Dates: end: 20190221

REACTIONS (7)
  - Hepatocellular injury [Recovered/Resolved]
  - Blood pressure increased [Unknown]
  - Heart rate increased [Unknown]
  - Transplant rejection [Recovered/Resolved]
  - Hepatitis acute [Unknown]
  - Pain in extremity [Unknown]
  - Arteriovenous fistula thrombosis [Unknown]

NARRATIVE: CASE EVENT DATE: 20190211
